FAERS Safety Report 9257647 (Version 2)
Quarter: 2013Q2

REPORT INFORMATION
  Report Type: Spontaneous
  Country: US (occurrence: US)
  Receive Date: 20130426
  Receipt Date: 20130603
  Transmission Date: 20140414
  Serious: No
  Sender: FDA-Public Use
  Company Number: US-PFIZER INC-2013127772

PATIENT
  Age: 62 Year
  Sex: Female
  Weight: 73.5 kg

DRUGS (8)
  1. ESTRING [Suspect]
     Indication: VULVOVAGINAL DRYNESS
     Dosage: 2 MG, EVERY 3 MONTHS
     Route: 067
     Dates: start: 2012
  2. ESTRING [Suspect]
     Indication: VULVOVAGINAL DISCOMFORT
  3. WELLBUTRIN [Concomitant]
     Indication: DEPRESSION
     Dosage: 250 MG, DAILY
  4. WELLBUTRIN [Concomitant]
     Indication: ANXIETY
  5. ZOPICLONE [Concomitant]
     Indication: INSOMNIA
     Dosage: 10 MG, AS NEEDED
  6. KLONOPIN [Concomitant]
     Indication: INSOMNIA
     Dosage: 1 MG, AS NEEDED
  7. MIRTAZAPINE [Concomitant]
     Indication: DEPRESSION
     Dosage: 7.5 MG, DAILY AT NIGHT
  8. MIRTAZAPINE [Concomitant]
     Indication: INSOMNIA

REACTIONS (1)
  - Drug ineffective [Unknown]
